FAERS Safety Report 18921068 (Version 2)
Quarter: 2021Q1

REPORT INFORMATION
  Report Type: Spontaneous
  Country: JP (occurrence: JP)
  Receive Date: 20210222
  Receipt Date: 20210316
  Transmission Date: 20210420
  Serious: Yes (Other)
  Sender: FDA-Public Use
  Company Number: NVSJ2021JP002434

PATIENT
  Age: 77 Year
  Sex: Male

DRUGS (9)
  1. REVOLADE [Concomitant]
     Active Substance: ELTROMBOPAG OLAMINE
     Dosage: 50 MG
     Route: 048
     Dates: start: 20200120, end: 20200324
  2. PRIMOBOLAN [Suspect]
     Active Substance: METHENOLONE
     Indication: APLASTIC ANAEMIA
     Dosage: 10 MG
     Route: 048
     Dates: start: 20191216, end: 20201221
  3. REVOLADE [Concomitant]
     Active Substance: ELTROMBOPAG OLAMINE
     Dosage: 75 MG
     Route: 048
     Dates: start: 20200325, end: 20200419
  4. RED BLOOD CELLS, CONCENTRATED [Concomitant]
     Active Substance: HUMAN RED BLOOD CELL
     Dosage: 280 ML
     Route: 065
     Dates: start: 20200203, end: 20200301
  5. CYCLOSPORINE. [Suspect]
     Active Substance: CYCLOSPORINE
     Indication: APLASTIC ANAEMIA
     Dosage: 150 MG
     Route: 048
     Dates: start: 20191118
  6. RED BLOOD CELLS, CONCENTRATED [Concomitant]
     Active Substance: HUMAN RED BLOOD CELL
     Dosage: 280 ML
     Route: 065
     Dates: start: 20200106, end: 20200202
  7. RED BLOOD CELLS, CONCENTRATED [Concomitant]
     Active Substance: HUMAN RED BLOOD CELL
     Indication: PRODUCT USED FOR UNKNOWN INDICATION
     Dosage: 280 ML
     Route: 065
     Dates: start: 20191111, end: 20191208
  8. REVOLADE [Concomitant]
     Active Substance: ELTROMBOPAG OLAMINE
     Indication: APLASTIC ANAEMIA
     Dosage: 25 MG
     Route: 048
     Dates: start: 20200106, end: 20200119
  9. REVOLADE [Concomitant]
     Active Substance: ELTROMBOPAG OLAMINE
     Dosage: 100 MG
     Route: 048
     Dates: start: 20200420

REACTIONS (3)
  - Bacterial infection [Recovered/Resolved]
  - Product use in unapproved indication [Unknown]
  - Hepatic function abnormal [Recovering/Resolving]

NARRATIVE: CASE EVENT DATE: 20200129
